FAERS Safety Report 8853912 (Version 1)
Quarter: 2012Q4

REPORT INFORMATION
  Report Type: 
  Country: CA (occurrence: CA)
  Receive Date: 20121022
  Receipt Date: 20121022
  Transmission Date: 20130627
  Serious: Yes (Hospitalization, Other)
  Sender: FDA-Public Use
  Company Number: PHHY2012CA075653

PATIENT
  Age: 85 None
  Sex: Female

DRUGS (5)
  1. ACLASTA [Suspect]
     Indication: OSTEOPOROSIS
     Route: 042
     Dates: start: 20111020
  2. PERINDOPRIL [Concomitant]
  3. RISPERDAL [Concomitant]
  4. RIVOTRIL [Concomitant]
  5. SYNTHROID [Concomitant]

REACTIONS (4)
  - Convulsion [Not Recovered/Not Resolved]
  - Fall [Unknown]
  - Hypertension [Unknown]
  - Contusion [Recovered/Resolved]
